FAERS Safety Report 26013463 (Version 1)
Quarter: 2025Q4

REPORT INFORMATION
  Report Type: Spontaneous
  Country: US (occurrence: US)
  Receive Date: 20251107
  Receipt Date: 20251107
  Transmission Date: 20260117
  Serious: No
  Sender: PFIZER
  Company Number: US-PFIZER INC-PV202500117045

PATIENT

DRUGS (1)
  1. PHENELZINE SULFATE [Suspect]
     Active Substance: PHENELZINE SULFATE

REACTIONS (1)
  - Drug ineffective [Unknown]
